FAERS Safety Report 11048596 (Version 1)
Quarter: 2015Q2

REPORT INFORMATION
  Report Type: Spontaneous
  Country: DE (occurrence: DE)
  Receive Date: 20150420
  Receipt Date: 20150420
  Transmission Date: 20150821
  Serious: Yes (Death, Other)
  Sender: FDA-Public Use
  Company Number: DE-GLAXOSMITHKLINE-DE2015GSK052642

PATIENT
  Age: 60 Year
  Sex: Female

DRUGS (2)
  1. CORTISON [Suspect]
     Active Substance: CORTISONE ACETATE
     Indication: AUTOIMMUNE DISORDER
  2. REVOLADE [Suspect]
     Active Substance: ELTROMBOPAG
     Indication: IMMUNE THROMBOCYTOPENIC PURPURA
     Route: 048

REACTIONS (4)
  - Overlap syndrome [Fatal]
  - Concomitant disease aggravated [Unknown]
  - Deep vein thrombosis [Unknown]
  - Sepsis [Fatal]

NARRATIVE: CASE EVENT DATE: 2014
